FAERS Safety Report 8429612-5 (Version None)
Quarter: 2012Q2

REPORT INFORMATION
  Report Type: 
  Country: None (occurrence: None)
  Receive Date: 20120612
  Receipt Date: 20120611
  Transmission Date: 20120825
  Serious: Yes (Other)
  Sender: FDA-Public Use
  Company Number: PHHY2012AT030946

PATIENT
  Sex: Female

DRUGS (1)
  1. RASILAMLO [Suspect]
     Indication: HYPERTENSION
     Dosage: 1 DF, QD
     Dates: start: 20111201, end: 20120101

REACTIONS (2)
  - SKIN PLAQUE [None]
  - PSORIASIS [None]
